FAERS Safety Report 4795475-2 (Version None)
Quarter: 2005Q3

REPORT INFORMATION
  Report Type: 
  Country: None (occurrence: None)
  Receive Date: 20050916
  Receipt Date: 20050601
  Transmission Date: 20060218
  Serious: Yes (Other)
  Sender: FDA-Public Use
  Company Number: US-JNJFOC-20050601442

PATIENT
  Age: 37 Year
  Sex: Female
  Weight: 99.7913 kg

DRUGS (3)
  1. TOPAMAX [Suspect]
     Indication: HEADACHE
     Dosage: 25 MG, 2 IN 1 DAY; ORAL
     Route: 048
     Dates: start: 20050427
  2. EFFEXOR XR (TABLETS) VENLAFAXINE HYDROCHLORIDE [Concomitant]
  3. ZONEGRAN (TABLETS) ZONISAMIDE [Concomitant]

REACTIONS (2)
  - DEPRESSION [None]
  - SUICIDAL IDEATION [None]
